FAERS Safety Report 15473499 (Version 3)
Quarter: 2018Q4

REPORT INFORMATION
  Report Type: Spontaneous
  Country: JP (occurrence: JP)
  Receive Date: 20181008
  Receipt Date: 20181016
  Transmission Date: 20190205
  Serious: Yes (Other)
  Sender: FDA-Public Use
  Company Number: JP-TEVA-2018-JP-002581J

PATIENT
  Sex: Female

DRUGS (1)
  1. PREDNISOLONE TABLETS 5MG [Suspect]
     Active Substance: PREDNISOLONE
     Indication: NEPHROTIC SYNDROME
     Route: 065

REACTIONS (4)
  - Maternal exposure during pregnancy [Unknown]
  - Placental insufficiency [Unknown]
  - Gestational hypertension [Recovering/Resolving]
  - Hypertensive nephropathy [Unknown]
